FAERS Safety Report 14804006 (Version 1)
Quarter: 2018Q2

REPORT INFORMATION
  Report Type: Spontaneous
  Country: US (occurrence: US)
  Receive Date: 20180425
  Receipt Date: 20180425
  Transmission Date: 20180711
  Serious: No
  Sender: FDA-Public Use
  Company Number: US-TEVA-808132ACC

PATIENT
  Sex: Male

DRUGS (2)
  1. WARFARIN [Concomitant]
     Active Substance: WARFARIN
  2. CEFALEXIN [Suspect]
     Active Substance: CEPHALEXIN
     Indication: URINARY TRACT INFECTION
     Dosage: 1000 MILLIGRAM DAILY;
     Dates: start: 20170911

REACTIONS (3)
  - White blood cells urine positive [Unknown]
  - Dysuria [Unknown]
  - Micturition frequency decreased [Unknown]

NARRATIVE: CASE EVENT DATE: 201709
